FAERS Safety Report 10466984 (Version 1)
Quarter: 2014Q2

REPORT INFORMATION
  Report Type: Spontaneous
  Country: US (occurrence: None)
  Receive Date: 20140613
  Receipt Date: 20140613
  Transmission Date: 20141212
  Serious: No
  Sender: FDA-Public Use
  Company Number: US-2014-103155

PATIENT
  Age: 21 Year
  Sex: Male
  Weight: 27 kg

DRUGS (1)
  1. VIMIZIM [Suspect]
     Indication: MUCOPOLYSACCHARIDOSIS
     Route: 042
     Dates: start: 20140325

REACTIONS (1)
  - Vomiting [None]
